FAERS Safety Report 7779049-7 (Version None)
Quarter: 2011Q3

REPORT INFORMATION
  Report Type: 
  Country: None (occurrence: None)
  Receive Date: 20110926
  Receipt Date: 20110922
  Transmission Date: 20111222
  Serious: Yes (Other)
  Sender: FDA-Public Use
  Company Number: US-BAYER-2011-090161

PATIENT
  Age: 50 Year
  Sex: Male

DRUGS (1)
  1. MAGNEVIST [Suspect]
     Indication: NUCLEAR MAGNETIC RESONANCE IMAGING
     Dosage: 16 ML, ONCE
     Route: 042
     Dates: start: 20110921, end: 20110921

REACTIONS (5)
  - ERYTHEMA [None]
  - PHARYNGEAL OEDEMA [None]
  - HYPERHIDROSIS [None]
  - ANAPHYLACTIC REACTION [None]
  - NAUSEA [None]
